FAERS Safety Report 5620194-X (Version None)
Quarter: 2008Q1

REPORT INFORMATION
  Report Type: 
  Country: None (occurrence: None)
  Receive Date: 20080208
  Receipt Date: 20080129
  Transmission Date: 20080703
  Serious: Yes (Hospitalization, Other)
  Sender: FDA-Public Use
  Company Number: US-WYE-H02368508

PATIENT
  Sex: Female

DRUGS (6)
  1. EFFEXOR [Suspect]
     Indication: ANXIETY
     Dosage: UNKNOWN
  2. EFFEXOR [Interacting]
     Indication: POST-TRAUMATIC STRESS DISORDER
  3. AMBIEN [Interacting]
     Dosage: UNKNOWN
  4. LAMICTAL [Interacting]
     Indication: AFFECTIVE DISORDER
     Route: 048
     Dates: start: 20020101
  5. LAMICTAL [Interacting]
     Indication: ANXIETY
     Route: 048
  6. LAMICTAL [Interacting]
     Indication: BINGE EATING

REACTIONS (7)
  - BACK INJURY [None]
  - BLADDER DISORDER [None]
  - DRUG INTERACTION [None]
  - INSOMNIA [None]
  - INTERVERTEBRAL DISC PROTRUSION [None]
  - INTESTINAL FUNCTIONAL DISORDER [None]
  - NERVE INJURY [None]
